FAERS Safety Report 9246164 (Version 3)
Quarter: 2015Q3

REPORT INFORMATION
  Report Type: Spontaneous
  Country: US (occurrence: US)
  Receive Date: 20130422
  Receipt Date: 20150831
  Transmission Date: 20151125
  Serious: Yes (Hospitalization, Disabling, Other)
  Sender: FDA-Public Use
  Company Number: US-009507513-1304USA010651

PATIENT
  Sex: Male
  Weight: 181.41 kg

DRUGS (3)
  1. PROPECIA [Suspect]
     Active Substance: FINASTERIDE
     Indication: ANDROGENETIC ALOPECIA
     Dosage: 1 MG, UNK
     Route: 048
     Dates: start: 2002, end: 2005
  2. IBUPROFEN. [Concomitant]
     Active Substance: IBUPROFEN
     Indication: INFECTION
     Dosage: UNK
     Route: 048
     Dates: start: 20001201, end: 200501
  3. CIPRO (CIPROFLOXACIN HYDROCHLORIDE) [Concomitant]
     Dosage: UNK
     Route: 048
     Dates: start: 200103, end: 201104

REACTIONS (24)
  - Joint injury [Not Recovered/Not Resolved]
  - Blood cholesterol increased [Unknown]
  - Hypothyroidism [Unknown]
  - Schizoaffective disorder [Unknown]
  - Cognitive disorder [Not Recovered/Not Resolved]
  - Suicidal ideation [Unknown]
  - Major depression [Unknown]
  - Hypertension [Unknown]
  - Loss of libido [Unknown]
  - Sleep apnoea syndrome [Unknown]
  - Sexual dysfunction [Not Recovered/Not Resolved]
  - Paranoia [Unknown]
  - Anxiety [Not Recovered/Not Resolved]
  - Hypogonadism [Unknown]
  - Pain [Unknown]
  - Vitamin D deficiency [Unknown]
  - Peripheral venous disease [Not Recovered/Not Resolved]
  - Treatment noncompliance [Unknown]
  - Hernia repair [Unknown]
  - Erectile dysfunction [Unknown]
  - Limb injury [Not Recovered/Not Resolved]
  - Blood testosterone decreased [Unknown]
  - Pyrexia [Unknown]
  - Ejaculation disorder [Unknown]

NARRATIVE: CASE EVENT DATE: 2002
